FAERS Safety Report 25380749 (Version 2)
Quarter: 2025Q2

REPORT INFORMATION
  Report Type: Report from Study
  Country: US (occurrence: US)
  Receive Date: 20250530
  Receipt Date: 20250630
  Transmission Date: 20250717
  Serious: Yes (Hospitalization)
  Sender: AGIOS PHARMACEUTICALS
  Company Number: US-AGIOS-2505US04272

PATIENT
  Sex: Female

DRUGS (1)
  1. MITAPIVAT [Suspect]
     Active Substance: MITAPIVAT
     Indication: Pyruvate kinase deficiency anaemia
     Route: 048
     Dates: start: 20220325

REACTIONS (4)
  - Fall [Unknown]
  - Pain [Recovering/Resolving]
  - Haemoglobin decreased [Recovering/Resolving]
  - Drug ineffective [Recovering/Resolving]
